FAERS Safety Report 4447986-7 (Version None)
Quarter: 2004Q3

REPORT INFORMATION
  Report Type: 
  Country: None (occurrence: None)
  Receive Date: 20040818
  Receipt Date: 20031029
  Transmission Date: 20050211
  Serious: Yes (Other)
  Sender: FDA-Public Use
  Company Number: 2003183511US

PATIENT
  Age: 49 Year
  Sex: Female

DRUGS (3)
  1. AZULFIDINE EN-TABS [Suspect]
     Dosage: 2 G
  2. FLAGYL [Suspect]
  3. NAPROSYN [Concomitant]

REACTIONS (1)
  - NEPHROTIC SYNDROME [None]
